FAERS Safety Report 5736837-6 (Version None)
Quarter: 2008Q2

REPORT INFORMATION
  Report Type: 
  Country: None (occurrence: None)
  Receive Date: 20080508
  Receipt Date: 20080422
  Transmission Date: 20081010
  Serious: Yes (Hospitalization)
  Sender: FDA-Public Use
  Company Number: S07-GER-05414-02

PATIENT
  Sex: Male
  Weight: 3.02 kg

DRUGS (2)
  1. CITALOPRAM HYDROBROMIDE [Suspect]
     Dosage: 40 MG QD TRANSPLACENTAL
     Route: 064
     Dates: start: 20070626, end: 20080222
  2. QUETIAPIN (QUETIAPINE) [Concomitant]

REACTIONS (7)
  - CAESAREAN SECTION [None]
  - DIARRHOEA NEONATAL [None]
  - DRUG EXPOSURE DURING PREGNANCY [None]
  - DRUG WITHDRAWAL SYNDROME NEONATAL [None]
  - MATERNAL DRUGS AFFECTING FOETUS [None]
  - PREGNANCY [None]
  - PREMATURE BABY [None]
